FAERS Safety Report 7880046-1 (Version None)
Quarter: 2011Q4

REPORT INFORMATION
  Report Type: 
  Country: None (occurrence: None)
  Receive Date: 20111101
  Receipt Date: 20111028
  Transmission Date: 20120403
  Serious: Yes (Other)
  Sender: FDA-Public Use
  Company Number: DE-ROCHE-801565

PATIENT
  Sex: Female
  Weight: 70 kg

DRUGS (2)
  1. HERCEPTIN [Suspect]
     Dosage: MAINTENANCE DOSE, THERAPY INTERRUPTED IN THE FOURTH CYCLE
     Route: 042
     Dates: start: 20110607, end: 20110809
  2. HERCEPTIN [Suspect]
     Indication: BREAST CANCER
     Dosage: LOADING DOSE
     Route: 042

REACTIONS (2)
  - RASH PRURITIC [None]
  - TRANSAMINASES INCREASED [None]
